FAERS Safety Report 4364152-4 (Version None)
Quarter: 2004Q2

REPORT INFORMATION
  Report Type: 
  Country: None (occurrence: None)
  Receive Date: 20040519
  Receipt Date: 20040510
  Transmission Date: 20050107
  Serious: Yes (Death)
  Sender: FDA-Public Use
  Company Number: 000792

PATIENT
  Age: 52 Year
  Sex: Male
  Weight: 81.6 kg

DRUGS (10)
  1. ZEVALIN [Suspect]
     Indication: NON-HODGKIN'S LYMPHOMA
     Dosage: SEE IMAGE
     Route: 042
     Dates: start: 20030827, end: 20030827
  2. ZEVALIN [Suspect]
     Indication: NON-HODGKIN'S LYMPHOMA
     Dosage: SEE IMAGE
     Route: 042
     Dates: start: 20030827, end: 20030827
  3. ZEVALIN [Suspect]
     Indication: NON-HODGKIN'S LYMPHOMA
     Dosage: SEE IMAGE
     Route: 042
     Dates: start: 20030903, end: 20030903
  4. ZEVALIN [Suspect]
     Indication: NON-HODGKIN'S LYMPHOMA
     Dosage: SEE IMAGE
     Route: 042
     Dates: start: 20030903, end: 20030903
  5. ZEVALIN [Suspect]
     Indication: NON-HODGKIN'S LYMPHOMA
     Dosage: SEE IMAGE
     Route: 042
     Dates: start: 20030903, end: 20030903
  6. ZEVALIN [Suspect]
  7. ZEVALIN [Suspect]
  8. ZEVALIN [Suspect]
  9. PRAVACHOL [Concomitant]
  10. LESCOL XL [Concomitant]

REACTIONS (3)
  - ARTERIOSCLEROSIS [None]
  - INFLUENZA [None]
  - LUNG INFILTRATION [None]
